FAERS Safety Report 8390228-0 (Version None)
Quarter: 2012Q2

REPORT INFORMATION
  Report Type: 
  Country: None (occurrence: None)
  Receive Date: 20120529
  Receipt Date: 20120523
  Transmission Date: 20120825
  Serious: Yes (Hospitalization)
  Sender: FDA-Public Use
  Company Number: FR-PFIZER INC-2012124741

PATIENT
  Age: 58 Year
  Sex: Female

DRUGS (5)
  1. CELEBREX [Suspect]
     Indication: CYST
     Dosage: UNK
     Route: 048
     Dates: start: 20120316, end: 20120322
  2. ZOLPIDEM TARTRATE [Concomitant]
     Indication: INSOMNIA
     Dosage: 1 DOSAGE FORM PER DAY
     Route: 048
  3. OMEPRAZOLE [Concomitant]
     Dosage: UNK
     Route: 048
  4. IRBESARTAN [Concomitant]
     Indication: HYPERTENSION
     Dosage: UNK
     Route: 048
  5. WYSTAMM [Concomitant]
     Indication: RHINITIS ALLERGIC
     Dosage: UNK
     Route: 048

REACTIONS (3)
  - RASH MACULO-PAPULAR [None]
  - RASH PUSTULAR [None]
  - PRURITUS [None]
